FAERS Safety Report 24922184 (Version 1)
Quarter: 2025Q1

REPORT INFORMATION
  Report Type: Spontaneous
  Country: AU (occurrence: AU)
  Receive Date: 20250204
  Receipt Date: 20250204
  Transmission Date: 20250409
  Serious: No
  Sender: TOLMAR
  Company Number: CA-TOLMAR, INC.-25AU055572

PATIENT
  Sex: Female

DRUGS (2)
  1. ELIGARD [Suspect]
     Active Substance: LEUPROLIDE ACETATE
     Indication: Product used for unknown indication
  2. ELIGARD [Suspect]
     Active Substance: LEUPROLIDE ACETATE
     Indication: Product used for unknown indication

REACTIONS (6)
  - Intermenstrual bleeding [Unknown]
  - Injection site irritation [Unknown]
  - Injection site discharge [Unknown]
  - Injection site mass [Unknown]
  - Breast tenderness [Unknown]
  - Drug ineffective [Unknown]
